FAERS Safety Report 17925822 (Version 1)
Quarter: 2020Q3

REPORT INFORMATION
  Report Type: Report from Study
  Country: ES (occurrence: ES)
  Receive Date: 20200622
  Receipt Date: 20200622
  Transmission Date: 20201104
  Serious: Yes (Hospitalization, Other)
  Sender: FDA-Public Use
  Company Number: ES-TEVA-2020-ES-1791525

PATIENT
  Sex: Female

DRUGS (3)
  1. POLATUZUMAB VEDOTIN. [Interacting]
     Active Substance: POLATUZUMAB VEDOTIN
     Indication: DIFFUSE LARGE B-CELL LYMPHOMA
     Route: 065
  2. BENDAMUSTINE HYDROCHLORIDE. [Suspect]
     Active Substance: BENDAMUSTINE HYDROCHLORIDE
     Indication: DIFFUSE LARGE B-CELL LYMPHOMA
     Route: 042
  3. RITUXIMAB. [Interacting]
     Active Substance: RITUXIMAB
     Indication: DIFFUSE LARGE B-CELL LYMPHOMA
     Route: 065

REACTIONS (8)
  - Mucosal infection [Recovered/Resolved]
  - Product use in unapproved indication [Unknown]
  - Mucosal inflammation [Recovered/Resolved]
  - Pancytopenia [Recovered/Resolved]
  - Drug interaction [Unknown]
  - Bacterial infection [Recovered/Resolved]
  - Fungal infection [Recovered/Resolved]
  - Herpes virus infection [Recovered/Resolved]
